FAERS Safety Report 23222284 (Version 1)
Quarter: 2023Q4

REPORT INFORMATION
  Report Type: Spontaneous
  Country: US (occurrence: US)
  Receive Date: 20231123
  Receipt Date: 20231123
  Transmission Date: 20240109
  Serious: Yes (Hospitalization, Other)
  Sender: FDA-Public Use
  Company Number: US-SANDOZ-SDZ2023US056616

PATIENT
  Age: 78 Year
  Sex: Male

DRUGS (21)
  1. CANRENOATE POTASSIUM [Suspect]
     Active Substance: CANRENOATE POTASSIUM
     Indication: Cardiac failure
     Dosage: 50 MG, QD
     Route: 048
     Dates: start: 20221110
  2. FUROSEMIDE [Suspect]
     Active Substance: FUROSEMIDE
     Dosage: 125 MG, BID
     Route: 048
  3. FUROSEMIDE [Suspect]
     Active Substance: FUROSEMIDE
     Indication: Cardiac failure
     Dosage: 250 MG, QD
     Route: 048
     Dates: start: 20221110
  4. FUROSEMIDE [Suspect]
     Active Substance: FUROSEMIDE
     Dosage: 250 MG
     Route: 048
  5. FUROSEMIDE [Suspect]
     Active Substance: FUROSEMIDE
     Dosage: 325 MG
     Route: 048
     Dates: end: 202308
  6. FUROSEMIDE [Suspect]
     Active Substance: FUROSEMIDE
     Dosage: 60 MG
     Route: 042
     Dates: end: 202308
  7. FUROSEMIDE [Suspect]
     Active Substance: FUROSEMIDE
     Dosage: 60 MG
     Route: 042
  8. FUROSEMIDE [Suspect]
     Active Substance: FUROSEMIDE
     Dosage: 20 MG 3  VIALS IN SALINE SOLUTION NACL 0.9 % 100 CC QD INTRAVENOUSLY (IV)
     Route: 042
     Dates: start: 202306
  9. METOLAZONE [Suspect]
     Active Substance: METOLAZONE
     Dosage: 2.5 MG, TIW, AT 8:00 PM ON MONDAYS, WEDNESDAYS, AND FRIDAYS
     Route: 048
     Dates: start: 202308
  10. METOLAZONE [Suspect]
     Active Substance: METOLAZONE
     Indication: Cardiac failure
     Dosage: UNK
     Route: 065
     Dates: start: 202306
  11. ACORAMIDIS [Concomitant]
     Active Substance: ACORAMIDIS
     Indication: Product used for unknown indication
     Dosage: UNK
     Route: 065
     Dates: start: 20230124
  12. ALLOPURINOL [Concomitant]
     Active Substance: ALLOPURINOL
     Indication: Hyperuricaemia
     Dosage: 150 MG, QD
     Route: 048
     Dates: start: 20220929
  13. BRINTELLIX [Concomitant]
     Active Substance: VORTIOXETINE HYDROBROMIDE
     Indication: Depression
     Dosage: 20 DROP, QD
     Route: 065
     Dates: start: 20221101, end: 20230828
  14. FENTANYL [Concomitant]
     Active Substance: FENTANYL\FENTANYL CITRATE
     Indication: Osteoarthritis
     Dosage: 50 UG, QD
     Route: 062
     Dates: start: 20230801
  15. FENTANYL [Concomitant]
     Active Substance: FENTANYL\FENTANYL CITRATE
     Dosage: 50 UG, EVERY 72HRS
     Route: 062
     Dates: start: 20230801
  16. MIRTAZAPINE [Concomitant]
     Active Substance: MIRTAZAPINE
     Indication: Product used for unknown indication
     Dosage: 30 MG, QD
     Route: 048
  17. OXYGEN [Concomitant]
     Active Substance: OXYGEN
     Indication: Cardiac failure
     Dosage: 2-3 L/MIN 24 HOURS A  DAY
     Route: 045
     Dates: start: 20230607
  18. PANTOPRAZOLE [Concomitant]
     Active Substance: PANTOPRAZOLE
     Indication: Product used for unknown indication
     Dosage: 20 MG, QD
     Route: 048
  19. RIVAROXABAN [Concomitant]
     Active Substance: RIVAROXABAN
     Indication: Atrial fibrillation
     Dosage: 20 MG, QD
     Route: 048
     Dates: start: 20230108
  20. TAMSULOSIN [Concomitant]
     Active Substance: TAMSULOSIN
     Indication: Benign prostatic hyperplasia
     Dosage: 0.4 MG, QD
     Route: 048
     Dates: start: 20221201
  21. GLYCOPYRRONIUM\INDACATEROL [Concomitant]
     Active Substance: GLYCOPYRRONIUM\INDACATEROL
     Indication: Product used for unknown indication
     Dosage: 85/43 MCG QD
     Route: 055

REACTIONS (5)
  - Hyponatraemia [Recovered/Resolved]
  - Atrial fibrillation [Unknown]
  - Bundle branch block left [Unknown]
  - Hypovolaemia [Recovered/Resolved]
  - Hypercreatininaemia [Unknown]

NARRATIVE: CASE EVENT DATE: 20230814
